FAERS Safety Report 13739148 (Version 1)
Quarter: 2017Q3

REPORT INFORMATION
  Report Type: Report from Study
  Country: US (occurrence: US)
  Receive Date: 20170710
  Receipt Date: 20170710
  Transmission Date: 20171127
  Serious: No
  Sender: FDA-Public Use
  Company Number: US-SAOL THERAPEUTICS-2017SAO00633

PATIENT
  Age: 42 Year
  Sex: Female

DRUGS (31)
  1. COMPOUNDED BACLOFEN [Suspect]
     Active Substance: BACLOFEN
     Dosage: 556.06 ?G, \DAY
     Route: 037
     Dates: start: 20111027
  2. COMPOUNDED BACLOFEN [Suspect]
     Active Substance: BACLOFEN
     Dosage: 361.64 ?G, \DAY
     Route: 037
     Dates: start: 20130419
  3. COMPOUNDED BACLOFEN [Suspect]
     Active Substance: BACLOFEN
     Dosage: UNK
  4. DILAUDID [Suspect]
     Active Substance: HYDROMORPHONE HYDROCHLORIDE
     Dosage: 1.3562 MG, \DAY
     Route: 037
     Dates: start: 20130419
  5. DILAUDID [Suspect]
     Active Substance: HYDROMORPHONE HYDROCHLORIDE
     Dosage: 3.4754 MG, \DAY
     Route: 037
     Dates: start: 20111027
  6. CLONIDINE. [Suspect]
     Active Substance: CLONIDINE
     Dosage: 140.07 ?G, \DAY
     Route: 037
     Dates: start: 20111027
  7. CLONIDINE. [Suspect]
     Active Substance: CLONIDINE
     Dosage: 180.82 ?G, \DAY
     Route: 037
     Dates: start: 20130419
  8. DILAUDID [Suspect]
     Active Substance: HYDROMORPHONE HYDROCHLORIDE
     Dosage: 2.2674 MG, \DAY
     Route: 037
     Dates: start: 20130306, end: 20130419
  9. BUPIVACAINE. [Suspect]
     Active Substance: BUPIVACAINE
     Dosage: 14.98 MG, \DAY
     Route: 037
     Dates: start: 20130306, end: 20130419
  10. BUPIVACAINE. [Suspect]
     Active Substance: BUPIVACAINE
     Dosage: 13.562 MG, \DAY
     Route: 037
     Dates: start: 20130419
  11. CLONIDINE. [Suspect]
     Active Substance: CLONIDINE
     Dosage: 278.03 ?G, \DAY
     Route: 037
     Dates: start: 20111027
  12. CLONIDINE. [Suspect]
     Active Substance: CLONIDINE
     Dosage: 199.73 ?G, \DAY
     Route: 037
     Dates: start: 20130306, end: 20130419
  13. COMPOUNDED BACLOFEN [Suspect]
     Active Substance: BACLOFEN
     Dosage: 604.63 ?G, \DAY
     Route: 037
     Dates: start: 20130306, end: 20130419
  14. BUPIVACAINE. [Suspect]
     Active Substance: BUPIVACAINE
     Dosage: 20.852 MG, \DAY
     Route: 037
     Dates: start: 20111027
  15. COMPOUNDED BACLOFEN [Suspect]
     Active Substance: BACLOFEN
     Dosage: 280.15 ?G, \DAY
     Route: 037
     Dates: start: 20111027
  16. CLONIDINE. [Suspect]
     Active Substance: CLONIDINE
     Dosage: 304.39 ?G, \DAY
     Route: 037
     Dates: start: 20130419
  17. DROPERIDOL. [Suspect]
     Active Substance: DROPERIDOL
     Dosage: 45.21 ?G, \DAY
     Route: 037
     Dates: start: 20130419
  18. COMPOUNDED BACLOFEN [Suspect]
     Active Substance: BACLOFEN
     Dosage: 608.78 ?G, \DAY
     Route: 037
     Dates: start: 20130419
  19. DROPERIDOL. [Suspect]
     Active Substance: DROPERIDOL
     Dosage: 49.93 ?G, \DAY
     Route: 037
     Dates: start: 20130306, end: 20130419
  20. DROPERIDOL. [Suspect]
     Active Substance: DROPERIDOL
     Dosage: 75.58 ?G, \DAY
     Route: 037
     Dates: start: 20130306, end: 20130419
  21. DROPERIDOL. [Suspect]
     Active Substance: DROPERIDOL
     Dosage: 76.10 ?G, \DAY
     Route: 037
     Dates: start: 20130419
  22. DROPERIDOL. [Suspect]
     Active Substance: DROPERIDOL
     Dosage: 43.77 ?G, \DAY
     Route: 037
     Dates: start: 20111027
  23. DROPERIDOL. [Suspect]
     Active Substance: DROPERIDOL
     Dosage: 86.88 ?G, \DAY
     Route: 037
     Dates: start: 20111027
  24. COMPOUNDED BACLOFEN [Suspect]
     Active Substance: BACLOFEN
     Dosage: 399.47 ?G, \DAY
     Route: 037
     Dates: start: 20130306, end: 20130419
  25. DILAUDID [Suspect]
     Active Substance: HYDROMORPHONE HYDROCHLORIDE
     Dosage: 1.498 MG, \DAY
     Route: 037
     Dates: start: 20130306, end: 20130419
  26. DILAUDID [Suspect]
     Active Substance: HYDROMORPHONE HYDROCHLORIDE
     Dosage: 1.7509 MG, \DAY
     Route: 037
     Dates: start: 20111027
  27. BUPIVACAINE. [Suspect]
     Active Substance: BUPIVACAINE
     Dosage: 22.674 MG, \DAY
     Route: 037
     Dates: start: 20130306, end: 20130419
  28. BUPIVACAINE. [Suspect]
     Active Substance: BUPIVACAINE
     Dosage: 22.829 MG, \DAY
     Route: 037
     Dates: start: 20130419
  29. BUPIVACAINE. [Suspect]
     Active Substance: BUPIVACAINE
     Dosage: 10.506 MG, \DAY
     Route: 037
     Dates: start: 20111027
  30. CLONIDINE. [Suspect]
     Active Substance: CLONIDINE
     Dosage: 302.31 ?G, \DAY
     Route: 037
     Dates: start: 20130306, end: 20130419
  31. DILAUDID [Suspect]
     Active Substance: HYDROMORPHONE HYDROCHLORIDE
     Dosage: 2.2829 MG, \DAY
     Route: 037
     Dates: start: 20130419

REACTIONS (1)
  - Pruritus [Recovered/Resolved]

NARRATIVE: CASE EVENT DATE: 20120127
